FAERS Safety Report 5710434-0 (Version None)
Quarter: 2008Q2

REPORT INFORMATION
  Report Type: 
  Country: None (occurrence: None)
  Receive Date: 20080418
  Receipt Date: 20080407
  Transmission Date: 20081010
  Serious: Yes (Hospitalization, Other)
  Sender: FDA-Public Use
  Company Number: US-PFIZER INC-2008032785

PATIENT
  Age: 27 Year
  Sex: Male

DRUGS (1)
  1. METHYLPREDNISOLONE SODIUM SUCCINATE [Suspect]
     Dosage: DAILY DOSE:1.5GRAM
     Route: 042

REACTIONS (7)
  - ARTHRALGIA [None]
  - HEART RATE INCREASED [None]
  - HYPERTENSIVE CRISIS [None]
  - MUSCULOSKELETAL CHEST PAIN [None]
  - NAUSEA [None]
  - PHAEOCHROMOCYTOMA [None]
  - VOMITING [None]
